FAERS Safety Report 9357060 (Version 1)
Quarter: 2013Q2

REPORT INFORMATION
  Report Type: Report from Study
  Country: GB (occurrence: GB)
  Receive Date: 20130620
  Receipt Date: 20130620
  Transmission Date: 20140414
  Serious: Yes (Other)
  Sender: FDA-Public Use
  Company Number: GB-ACCORD-018141

PATIENT
  Sex: 0

DRUGS (1)
  1. MITOMYCIN [Suspect]
     Indication: SURGERY
     Dosage: 0.2 MG/M FOR 2-3 MIN

REACTIONS (2)
  - Hypotony of eye [Unknown]
  - Off label use [Unknown]
